FAERS Safety Report 19589655 (Version 1)
Quarter: 2021Q3

REPORT INFORMATION
  Report Type: Spontaneous
  Country: CO (occurrence: CO)
  Receive Date: 20210721
  Receipt Date: 20210721
  Transmission Date: 20211014
  Serious: Yes (Other)
  Sender: FDA-Public Use
  Company Number: CO-BAYER-2021-174846

PATIENT
  Age: 80 Year
  Sex: Female

DRUGS (1)
  1. NEXAVAR [Suspect]
     Active Substance: SORAFENIB
     Indication: THYROID CANCER
     Dosage: UNK
     Route: 054

REACTIONS (5)
  - Dyspnoea [None]
  - Dysphagia [None]
  - Incorrect route of product administration [None]
  - Thyroid cancer [Recovering/Resolving]
  - Respiratory distress [None]
